FAERS Safety Report 15095290 (Version 1)
Quarter: 2018Q3

REPORT INFORMATION
  Report Type: Spontaneous
  Country: AU (occurrence: AU)
  Receive Date: 20180702
  Receipt Date: 20180702
  Transmission Date: 20181010
  Serious: Yes (Other)
  Sender: FDA-Public Use
  Company Number: AU-TEVA-2018-AU-916037

PATIENT
  Sex: Female

DRUGS (1)
  1. PACLITAXEL. [Suspect]
     Active Substance: PACLITAXEL
     Route: 065

REACTIONS (5)
  - Abdominal mass [Unknown]
  - Liver function test increased [Unknown]
  - Malignant neoplasm progression [Unknown]
  - Second primary malignancy [Unknown]
  - Uterine cancer [Unknown]
